FAERS Safety Report 6174720-5 (Version None)
Quarter: 2009Q2

REPORT INFORMATION
  Report Type: 
  Country: None (occurrence: None)
  Receive Date: 20090430
  Receipt Date: 20080902
  Transmission Date: 20091009
  Serious: No
  Sender: FDA-Public Use
  Company Number: US-ASTRAZENECA-2008UW17979

PATIENT
  Age: 77 Year
  Sex: Female
  Weight: 63.5 kg

DRUGS (7)
  1. NEXIUM [Suspect]
     Indication: DYSPEPSIA
     Route: 048
     Dates: start: 20080828
  2. CITALOPRAM HYDROBROMIDE [Concomitant]
  3. INSULIN [Concomitant]
  4. DIABETIC MEDICINE [Concomitant]
  5. BP MEDICINE [Concomitant]
  6. CHOLESTEROL MEDICINE [Concomitant]
  7. VIT. C AND B...A WHOLE LIST OF THEM [Concomitant]

REACTIONS (1)
  - CHEST PAIN [None]
